FAERS Safety Report 13782845 (Version 1)
Quarter: 2017Q3

REPORT INFORMATION
  Report Type: Report from Study
  Country: US (occurrence: US)
  Receive Date: 20170724
  Receipt Date: 20170724
  Transmission Date: 20171127
  Serious: No
  Sender: FDA-Public Use
  Company Number: US-IPSEN BIOPHARMACEUTICALS, INC.-2016-10665

PATIENT
  Age: 50 Year
  Sex: Female
  Weight: 81.65 kg

DRUGS (3)
  1. PROGESTERONE. [Concomitant]
     Active Substance: PROGESTERONE
  2. SOMATULINE [Suspect]
     Active Substance: LANREOTIDE ACETATE
     Dosage: NOT REPORTED
     Route: 065
     Dates: start: 20161205
  3. SOMATULINE [Suspect]
     Active Substance: LANREOTIDE ACETATE
     Indication: NEUROENDOCRINE TUMOUR
     Dosage: NOT REPORTED
     Route: 065

REACTIONS (2)
  - Abdominal distension [Unknown]
  - Abdominal pain [Recovered/Resolved]

NARRATIVE: CASE EVENT DATE: 201612
